FAERS Safety Report 7117255-5 (Version None)
Quarter: 2010Q4

REPORT INFORMATION
  Report Type: 
  Country: None (occurrence: None)
  Receive Date: 20101122
  Receipt Date: 20080529
  Transmission Date: 20110411
  Serious: Yes (Other)
  Sender: FDA-Public Use
  Company Number: PHHO2008AU16320

PATIENT
  Sex: Female

DRUGS (1)
  1. ZADITEN ZA+ [Suspect]
     Indication: HEREDITARY ANGIOEDEMA
     Dosage: 1 MG, TID
     Route: 048
     Dates: start: 20070101, end: 20080718

REACTIONS (9)
  - ABDOMINAL DISTENSION [None]
  - ABDOMINAL TENDERNESS [None]
  - DIARRHOEA [None]
  - FLATULENCE [None]
  - GASTROINTESTINAL INFLAMMATION [None]
  - OEDEMA MOUTH [None]
  - PYREXIA [None]
  - SWOLLEN TONGUE [None]
  - URTICARIA [None]
